FAERS Safety Report 8817125 (Version 1)
Quarter: 2012Q4

REPORT INFORMATION
  Report Type: Spontaneous
  Country: US (occurrence: None)
  Receive Date: 20121003
  Receipt Date: 20121003
  Transmission Date: 20130627
  Serious: No
  Sender: FDA-Public Use
  Company Number: None

PATIENT
  Sex: Female

DRUGS (1)
  1. PHENYTOIN [Suspect]
     Indication: EPILEPSY
     Dosage: 100 mg 3 qhs

REACTIONS (4)
  - Convulsion [None]
  - Pregnancy [None]
  - Exposure during pregnancy [None]
  - Product substitution issue [None]
